FAERS Safety Report 15464554 (Version 2)
Quarter: 2018Q4

REPORT INFORMATION
  Report Type: Spontaneous
  Country: US (occurrence: US)
  Receive Date: 20181004
  Receipt Date: 20181004
  Transmission Date: 20190204
  Serious: No
  Sender: FDA-Public Use
  Company Number: US-MELINTA-US-MDCO-17-00501

PATIENT
  Age: 88 Year
  Sex: Female

DRUGS (5)
  1. ORBACTIV [Suspect]
     Active Substance: ORITAVANCIN
     Indication: STAPHYLOCOCCAL INFECTION
     Dosage: NOT REPORTED
     Dates: start: 20171005
  2. ZANTAC [Concomitant]
     Active Substance: RANITIDINE HYDROCHLORIDE
     Indication: PREMEDICATION
     Dosage: NOT REPORTED
     Dates: start: 20171019
  3. ORBACTIV [Suspect]
     Active Substance: ORITAVANCIN
     Dosage: NOT REPORTED
     Route: 041
     Dates: start: 20171019
  4. ACETAMINOPHEN. [Concomitant]
     Active Substance: ACETAMINOPHEN
     Indication: PREMEDICATION
     Dosage: NOT REPORTED
     Route: 042
     Dates: start: 20171019
  5. BENADRYL [Concomitant]
     Active Substance: DIPHENHYDRAMINE HYDROCHLORIDE
     Indication: PREMEDICATION
     Dosage: NOT REPORTED
     Dates: start: 20171019

REACTIONS (1)
  - Back pain [Recovered/Resolved]

NARRATIVE: CASE EVENT DATE: 20171019
